FAERS Safety Report 7413195-2 (Version None)
Quarter: 2011Q2

REPORT INFORMATION
  Report Type: 
  Country: None (occurrence: None)
  Receive Date: 20110413
  Receipt Date: 20110331
  Transmission Date: 20111010
  Serious: Yes (Other)
  Sender: FDA-Public Use
  Company Number: DE-GENENTECH-314585

PATIENT
  Sex: Female
  Weight: 59 kg

DRUGS (7)
  1. MABTHERA [Suspect]
     Dosage: UNK
     Route: 042
     Dates: start: 20101101
  2. PREDNISONE [Concomitant]
     Indication: NON-HODGKIN'S LYMPHOMA
  3. DOXORUBICIN [Concomitant]
     Indication: NON-HODGKIN'S LYMPHOMA
  4. VINCRISTINE [Concomitant]
     Indication: NON-HODGKIN'S LYMPHOMA
  5. CYCLOPHOSPHAMIDE [Concomitant]
     Indication: NON-HODGKIN'S LYMPHOMA
  6. BENDAMUSTINE [Concomitant]
     Indication: NON-HODGKIN'S LYMPHOMA
  7. MABTHERA [Suspect]
     Indication: NON-HODGKIN'S LYMPHOMA
     Dosage: 375 MG/M2, UNK
     Route: 042
     Dates: start: 20070801, end: 20100801

REACTIONS (3)
  - PARALYSIS [None]
  - PROGRESSIVE MULTIFOCAL LEUKOENCEPHALOPATHY [None]
  - GLIAL SCAR [None]
